FAERS Safety Report 25258279 (Version 1)
Quarter: 2025Q2

REPORT INFORMATION
  Report Type: Spontaneous
  Country: US (occurrence: US)
  Receive Date: 20250501
  Receipt Date: 20250501
  Transmission Date: 20250716
  Serious: Yes (Hospitalization, Other)
  Sender: SPECGX
  Company Number: US-SPECGX-T202500807

PATIENT
  Age: 57 Year
  Sex: Male
  Weight: 101 kg

DRUGS (8)
  1. ANAFRANIL [Suspect]
     Active Substance: CLOMIPRAMINE HYDROCHLORIDE
     Indication: Pruritus
     Dosage: 150 MILLIGRAM, QHS
     Route: 065
     Dates: start: 2023
  2. FINASTERIDE [Suspect]
     Active Substance: FINASTERIDE
     Indication: Product used for unknown indication
     Route: 065
  3. THIOPENTAL SODIUM [Suspect]
     Active Substance: THIOPENTAL SODIUM
     Indication: Anaesthesia procedure
     Route: 065
  4. FENTANYL [Suspect]
     Active Substance: FENTANYL
     Indication: Anaesthesia
     Route: 065
  5. FENTANYL [Suspect]
     Active Substance: FENTANYL
     Route: 065
  6. ISOFLURANE [Suspect]
     Active Substance: ISOFLURANE
     Indication: Anaesthesia procedure
     Route: 065
  7. MIDAZOLAM [Suspect]
     Active Substance: MIDAZOLAM
     Indication: Product used for unknown indication
     Route: 065
  8. SUCCINYLCHOLINE [Suspect]
     Active Substance: SUCCINYLCHOLINE
     Indication: Product used for unknown indication
     Route: 065

REACTIONS (13)
  - Mitral valve incompetence [Unknown]
  - Dilatation ventricular [Unknown]
  - Ejection fraction decreased [Unknown]
  - Myocardial depression [Unknown]
  - Heart rate decreased [Unknown]
  - Atrioventricular block [Unknown]
  - Dizziness [Unknown]
  - Orthostatic hypotension [Unknown]
  - Hypotension [Unknown]
  - Mitral valve repair [Unknown]
  - Cardiopulmonary bypass [Unknown]
  - Endotracheal intubation [Unknown]
  - Product use in unapproved indication [Unknown]
